FAERS Safety Report 6329536-3 (Version None)
Quarter: 2009Q3

REPORT INFORMATION
  Report Type: 
  Country: None (occurrence: None)
  Receive Date: 20090826
  Receipt Date: 20090819
  Transmission Date: 20100115
  Serious: Yes (Hospitalization, Other)
  Sender: FDA-Public Use
  Company Number: US-ELI_LILLY_AND_COMPANY-US200908004362

PATIENT
  Age: 65 Year
  Sex: Female

DRUGS (7)
  1. HUMULIN 70/30 [Suspect]
     Dates: start: 20030101
  2. HUMALOG MIX 75/25 [Suspect]
     Dates: end: 20060101
  3. FORTEO [Suspect]
     Dosage: UNK, UNK
     Dates: start: 20090615
  4. FORTEO [Suspect]
     Dosage: UNK, UNK
     Dates: start: 20090615
  5. AVANDIA [Concomitant]
  6. NOVOLOG MIX 70/30 [Concomitant]
  7. ORAL ANTIDIABETICS [Concomitant]

REACTIONS (16)
  - BLOOD GLUCOSE FLUCTUATION [None]
  - CARDIAC FAILURE CONGESTIVE [None]
  - CATARACT [None]
  - DRUG INEFFECTIVE [None]
  - EYE OPERATION COMPLICATION [None]
  - HYPERHIDROSIS [None]
  - MOVEMENT DISORDER [None]
  - MUSCLE SPASMS [None]
  - OSTEOPOROSIS [None]
  - PAIN IN EXTREMITY [None]
  - PNEUMONIA [None]
  - RENAL FAILURE ACUTE [None]
  - SKIN CANCER [None]
  - SLEEP DISORDER [None]
  - URINE OUTPUT DECREASED [None]
  - VISUAL IMPAIRMENT [None]
